FAERS Safety Report 15322618 (Version 3)
Quarter: 2018Q4

REPORT INFORMATION
  Report Type: Spontaneous
  Country: CN (occurrence: CN)
  Receive Date: 20180827
  Receipt Date: 20181005
  Transmission Date: 20190204
  Serious: Yes (Other)
  Sender: FDA-Public Use
  Company Number: CN-JNJFOC-20180824253

PATIENT
  Age: 77 Year

DRUGS (3)
  1. IMBRUVICA [Suspect]
     Active Substance: IBRUTINIB
     Indication: MANTLE CELL LYMPHOMA
     Dosage: STRENGTH: 140MG*90
     Route: 048
     Dates: start: 201806
  2. IMBRUVICA [Suspect]
     Active Substance: IBRUTINIB
     Indication: MANTLE CELL LYMPHOMA
     Dosage: STRENGTH: 140MG*90
     Route: 048
     Dates: start: 2018
  3. IMBRUVICA [Suspect]
     Active Substance: IBRUTINIB
     Indication: MANTLE CELL LYMPHOMA
     Dosage: STRENGTH: 140MG*90
     Route: 048
     Dates: start: 2018

REACTIONS (1)
  - Haemorrhage subcutaneous [Recovering/Resolving]
